FAERS Safety Report 8464348-6 (Version None)
Quarter: 2012Q2

REPORT INFORMATION
  Report Type: 
  Country: None (occurrence: None)
  Receive Date: 20120626
  Receipt Date: 20120620
  Transmission Date: 20120825
  Serious: Yes (Other)
  Sender: FDA-Public Use
  Company Number: GR-AMGEN-GRCSP2012037510

PATIENT
  Age: 19 Year

DRUGS (8)
  1. BLEOMYCIN [Concomitant]
     Indication: HODGKIN'S DISEASE
  2. PROCARBAZINE HYDROCHLORIDE [Concomitant]
     Indication: HODGKIN'S DISEASE
  3. ADRIAMYCIN PFS [Concomitant]
     Indication: HODGKIN'S DISEASE
  4. ONCOVIN [Concomitant]
     Indication: HODGKIN'S DISEASE
  5. GRANULOKINE [Suspect]
     Indication: PRODUCT USED FOR UNKNOWN INDICATION
     Dosage: UNK
  6. ETOPOSIDE [Concomitant]
     Indication: HODGKIN'S DISEASE
  7. CYCLOPHOSPHAMIDE [Concomitant]
     Indication: HODGKIN'S DISEASE
  8. PREDNISONE [Concomitant]
     Indication: HODGKIN'S DISEASE

REACTIONS (6)
  - BONE MARROW NECROSIS [None]
  - MUSCULOSKELETAL CHEST PAIN [None]
  - ARTHRALGIA [None]
  - PELVIC PAIN [None]
  - PANCYTOPENIA [None]
  - BLOOD LACTATE DEHYDROGENASE INCREASED [None]
